FAERS Safety Report 20632689 (Version 9)
Quarter: 2022Q2

REPORT INFORMATION
  Report Type: Report from Study
  Country: GB (occurrence: GB)
  Receive Date: 20220324
  Receipt Date: 20220526
  Transmission Date: 20220721
  Serious: Yes (Life-Threatening, Hospitalization, Other)
  Sender: FDA-Public Use
  Company Number: None

PATIENT
  Age: 69 Year
  Sex: Female

DRUGS (88)
  1. TRASTUZUMAB [Suspect]
     Active Substance: TRASTUZUMAB
     Indication: Breast cancer metastatic
     Dosage: 450 MILLIGRAM, QD, 1 TOTAL (LOADING DOSE) DOSE FORM:230; DOSGE FORM: INFUSION, SOLUTION
     Route: 041
     Dates: start: 20151105, end: 20151105
  2. TRASTUZUMAB [Suspect]
     Active Substance: TRASTUZUMAB
     Dosage: 350 MILLIGRAM, Q3W, (MAINTENANCE DOSE; DOSE FORM: 230; CUMULATIVE DOSE: 33.333332 MG)
     Route: 042
     Dates: start: 20151203, end: 20180427
  3. TRASTUZUMAB [Suspect]
     Active Substance: TRASTUZUMAB
     Dosage: 336 MILLIGRAM, Q3W (MAINTENANCE DOSE; DOSE FORM: 230; CUMULATIVE DOSE: 33.333332 MG)
     Route: 042
     Dates: start: 20180518, end: 20190327
  4. TRASTUZUMAB [Suspect]
     Active Substance: TRASTUZUMAB
     Dosage: 336 MILLIGRAM, Q3W,  DOSE FORM: 230, (CUMULATIVE DOSE TO FIRST REACTION:14383.333MG
     Route: 042
     Dates: start: 20180518, end: 20190427
  5. TRASTUZUMAB [Suspect]
     Active Substance: TRASTUZUMAB
     Dosage: 450 MILLIGRAM, Q3W (LOADING DOSE; DOSE FORM: 293)
     Route: 041
     Dates: start: 20151105
  6. TRASTUZUMAB [Suspect]
     Active Substance: TRASTUZUMAB
     Dosage: 350 MILLIGRAM, Q3W, MAINTENANCE DOSE
     Route: 042
     Dates: start: 20151203, end: 20180327
  7. PACLITAXEL [Suspect]
     Active Substance: PACLITAXEL
     Indication: Breast cancer metastatic
     Dosage: 138 MILLIGRAM, (EVERY 4 WEEKS)
     Route: 042
     Dates: start: 20151203, end: 20160203
  8. PACLITAXEL [Suspect]
     Active Substance: PACLITAXEL
     Dosage: 120 MILLIGRAM, 34.75 MG CD, 884 MG, 4.92857142 MG
     Route: 042
     Dates: start: 20160204, end: 20160218
  9. PACLITAXEL [Suspect]
     Active Substance: PACLITAXEL
     Dosage: 68 MILLIGRAM, QW, 68 MG, EVERY 1 WEEKS (DATE OF LAST ADMINISTER
     Route: 042
     Dates: start: 20160303, end: 20160310
  10. PACLITAXEL [Suspect]
     Active Substance: PACLITAXEL
     Dosage: 120 MILLIGRAM, MONTHLY, EVERY 4 WEEKS (CUMULATIVE DOSE: 236.78572 MG)
     Route: 042
     Dates: start: 20160204, end: 20160218
  11. PACLITAXEL [Suspect]
     Active Substance: PACLITAXEL
     Dosage: 120 MILLIGRAM, MONTHLY, EVERY 4 WEEKS (CUMULATIVE DOSE: 44.67857 MG)
     Route: 042
     Dates: start: 20151210
  12. PACLITAXEL [Suspect]
     Active Substance: PACLITAXEL
     Dosage: 120 MILLIGRAM, MONTHLY, EVERY 4 WEEKS (34.75 MG CD, 884 MG, 4.92857142 MG; CUMULATIVE
     Route: 042
     Dates: start: 20160204, end: 20160218
  13. PACLITAXEL [Suspect]
     Active Substance: PACLITAXEL
     Dosage: 120 MILLIGRAM, MONTHLY, EVERY 4 WEEKS (CUMULATIVED DOSE: 229.5 MG)
     Route: 042
     Dates: start: 20160204, end: 20160218
  14. PACLITAXEL [Suspect]
     Active Substance: PACLITAXEL
     Dosage: 138 MILLIGRAM, MONTHLY, EVERY 4 WEEKS (CUMULATIVE DOSE: 229.5 MG)
     Route: 042
     Dates: start: 20151203, end: 20160203
  15. PACLITAXEL [Suspect]
     Active Substance: PACLITAXEL
     Dosage: 68 MILLIGRAM, QW, (DATE OF LAST ADMINISTERED DOSE: 10-MAR-2
     Route: 042
     Dates: start: 20160303, end: 20160310
  16. PACLITAXEL [Suspect]
     Active Substance: PACLITAXEL
     Dosage: 102 MILLIGRAM, Q28D (Q4W)CUMULATIVED DOSE: 229.5 MG
     Route: 042
     Dates: start: 20160204, end: 20160218
  17. PACLITAXEL [Suspect]
     Active Substance: PACLITAXEL
     Dosage: 139 MILLIGRAM, Q28D (Q4W)
     Route: 042
     Dates: start: 20151210
  18. PACLITAXEL [Suspect]
     Active Substance: PACLITAXEL
     Dosage: 134 MILLIGRAM, Q28D, 134 MG, Q4W
     Route: 042
     Dates: start: 20151210
  19. PACLITAXEL [Suspect]
     Active Substance: PACLITAXEL
     Dosage: 125 MILLIGRAM, Q28D, 125 MG, Q4W
     Route: 042
     Dates: start: 20160204, end: 20160218
  20. PACLITAXEL [Suspect]
     Active Substance: PACLITAXEL
     Dosage: 102 MILLIGRAM, QW, 102 MG, WEEKLY
     Route: 042
     Dates: start: 20160303, end: 20160310
  21. DOCETAXEL [Suspect]
     Active Substance: DOCETAXEL
     Indication: Breast cancer metastatic
     Dosage: 124 MILLIGRAM, Q3W, (CUMULATIVE DOSE: 159.42857 MG)
     Route: 042
     Dates: start: 20151106, end: 20151106
  22. DOCETAXEL [Suspect]
     Active Substance: DOCETAXEL
     Dosage: 124 MILLIGRAM, 3XW
     Route: 042
     Dates: start: 20151106
  23. HERCEPTIN [Suspect]
     Active Substance: TRASTUZUMAB
     Indication: Breast cancer metastatic
     Dosage: 450 MILLIGRAM,TOTAL (LOADING DOSE  16.6 MG, MAINTENANCE DOSE)
     Route: 041
     Dates: start: 20151105, end: 20151105
  24. HERCEPTIN [Suspect]
     Active Substance: TRASTUZUMAB
     Dosage: 350 MILLIGRAM, Q3W,(MAINTENANCE DOSE, DATE OF LAST ADMINISTERED DOSE: 27
     Route: 042
     Dates: start: 20151203
  25. HERCEPTIN [Suspect]
     Active Substance: TRASTUZUMAB
     Dosage: 336 MILLIGRAM, Q3W (DATE AND TIME OF LAST ADMINISTRATION 27 APR 2019)
     Route: 042
     Dates: start: 20180518
  26. HERCEPTIN [Suspect]
     Active Substance: TRASTUZUMAB
     Dosage: UNK, QW, 300 UNK, TIW
     Route: 042
     Dates: start: 20151203, end: 20180427
  27. PERTUZUMAB [Suspect]
     Active Substance: PERTUZUMAB
     Indication: Breast cancer metastatic
     Dosage: 840 MILLIGRAM, TOTAL (LOADING DOSE, INFUSION, SOLUTION; DOSE FORM: 23)
     Dates: start: 20151105, end: 20151105
  28. PERTUZUMAB [Suspect]
     Active Substance: PERTUZUMAB
     Dosage: 840 MILLIGRAM, TOTAL (LOADING DOSE, INFUSION, SOLUTION; DOSE FORM: 230)
     Route: 042
     Dates: start: 20151105, end: 20151105
  29. PERTUZUMAB [Suspect]
     Active Substance: PERTUZUMAB
     Dosage: 420 MILLIGRAM, Q3W, (MAINTENANCE DOSE, DF FORM: 230; CUMULATIVE DOSE; 40.0 MG)
     Route: 042
     Dates: start: 20151203
  30. PACLITAXEL [Suspect]
     Active Substance: PACLITAXEL
     Indication: Breast cancer metastatic
     Dosage: 138 MILLIGRAM, EVERY 4 WEEKS (CUMULATIVE DOSE: 229.5 MG)
     Route: 042
     Dates: start: 20151203
  31. PACLITAXEL [Suspect]
     Active Substance: PACLITAXEL
     Dosage: 138 MILLIGRAM, EVERY 4 WEEKS (CUMULATIVE DOSE: 229.5 MG)
     Route: 042
     Dates: start: 20151210
  32. PACLITAXEL [Suspect]
     Active Substance: PACLITAXEL
     Dosage: 120 MILLIGRAM, EVERY 4 WEEKS (34.75 MG CD, 884 MG, 4.92857142 MG;  CD: 229.5 MG)
     Route: 042
     Dates: start: 20160204
  33. PACLITAXEL [Suspect]
     Active Substance: PACLITAXEL
     Dosage: 68 MILLIGRAM, QW, (DATE OF LAST ADMINISTERED DOSE: 10-MAR-2016; CUMULATIVE DOSE: 229.5 MG)
     Route: 042
     Dates: start: 20160303
  34. PACLITAXEL [Suspect]
     Active Substance: PACLITAXEL
     Dosage: 102 MILLIGRAM, EVERY 4 WEEKS (CUMULATIVED DOSE: 236.78572MG)
     Route: 042
     Dates: start: 20160204, end: 20160218
  35. PACLITAXEL [Suspect]
     Active Substance: PACLITAXEL
     Dosage: 138 MILLIGRAM, CUMULATIVE DOSE: 229.5 MG))
     Route: 042
     Dates: start: 20151203, end: 20160203
  36. LORATADINE [Concomitant]
     Active Substance: LORATADINE
     Indication: Product used for unknown indication
     Dosage: UNK
     Route: 048
     Dates: start: 20151119, end: 20151217
  37. METOCLOPRAMIDE [Concomitant]
     Active Substance: METOCLOPRAMIDE
     Indication: Prophylaxis
     Dosage: 10 MILLIGRAM
     Route: 048
     Dates: start: 20151203
  38. METOCLOPRAMIDE [Concomitant]
     Active Substance: METOCLOPRAMIDE
     Indication: Prophylaxis of nausea and vomiting
     Dosage: 10 MILLIGRAM
     Route: 048
     Dates: start: 20151223
  39. DEXAMETHASONE [Concomitant]
     Active Substance: DEXAMETHASONE
     Indication: Prophylaxis
     Dosage: 8 MILLIGRAM
     Route: 048
     Dates: start: 20151105
  40. DEXAMETHASONE [Concomitant]
     Active Substance: DEXAMETHASONE
     Dosage: 8 MILLIGRAM
     Route: 048
     Dates: start: 20151105
  41. ATORVASTATIN [Concomitant]
     Active Substance: ATORVASTATIN
     Indication: Product used for unknown indication
     Dosage: 40 MILLIGRAM, QD (DOSE FORM: 245)(CUMD  TO FIRST REA
     Route: 048
     Dates: start: 20170701
  42. ATORVASTATIN [Concomitant]
     Active Substance: ATORVASTATIN
     Dosage: 350 MILLIGRAM, Q3W, (MAINTENANCE; CUM DOSE: 33.333332 MG)
     Route: 048
  43. ATORVASTATIN [Concomitant]
     Active Substance: ATORVASTATIN
     Dosage: 40 MILLIGRAM, QD (40 MG,1X/DAY)
     Route: 048
     Dates: start: 20170701
  44. TRAMADOL HYDROCHLORIDE [Concomitant]
     Active Substance: TRAMADOL HYDROCHLORIDE
     Indication: Prophylaxis
     Dosage: 50 MILLIGRAM
     Route: 048
     Dates: start: 20151105
  45. CLOPIDOGREL [Concomitant]
     Active Substance: CLOPIDOGREL BISULFATE
     Indication: Product used for unknown indication
     Dosage: UNK
     Route: 048
     Dates: start: 20170701
  46. TRIMETHOPRIM [Concomitant]
     Active Substance: TRIMETHOPRIM
     Indication: Urinary tract infection
     Dosage: 400 MILLIGRAM, QD,  (CUM DOSE TO FIRST REACTION: 3600.0 MG)
     Route: 048
     Dates: start: 20151210
  47. TRIMETHOPRIM [Concomitant]
     Active Substance: TRIMETHOPRIM
     Dosage: 200 MILLIGRAM, BID,  (START 10-DEC-2015)
     Route: 048
     Dates: start: 20151210
  48. TRIMETHOPRIM [Concomitant]
     Active Substance: TRIMETHOPRIM
     Dosage: 200 MILLIGRAM, QD
     Route: 048
     Dates: start: 20151210
  49. TRIMETHOPRIM [Concomitant]
     Active Substance: TRIMETHOPRIM
     Dosage: 200 MILLIGRAM, QD, (200 MG EVERY 0.5 DAY)
     Route: 048
     Dates: start: 20151210
  50. TRIMETHOPRIM [Concomitant]
     Active Substance: TRIMETHOPRIM
     Dosage: 400 MILLIGRAM,  (200 MG, 2X/DAY)
     Route: 048
     Dates: start: 20151210
  51. LOPERAMIDE [Concomitant]
     Active Substance: LOPERAMIDE
     Indication: Prophylaxis
     Dosage: 2 MILLIGRAM,  (4 TABLET TWICE A DAY FOR 3 DAYS)
     Route: 048
     Dates: start: 20151203
  52. LOPERAMIDE [Concomitant]
     Active Substance: LOPERAMIDE
     Indication: Prophylaxis against diarrhoea
     Dosage: 2 MILLIGRAM, BID, (4 TABLET TWICE A DAY FOR 3 DAYS)
     Route: 048
     Dates: start: 20151203
  53. LOPERAMIDE [Concomitant]
     Active Substance: LOPERAMIDE
     Dosage: 4 DOSAGE FORM, BID
     Route: 048
     Dates: start: 20151203
  54. LOPERAMIDE [Concomitant]
     Active Substance: LOPERAMIDE
     Dosage: 8 DOSAGE FORM, QD(4 DF, BID FOR 3 DAYS)
     Route: 048
     Dates: start: 20151203
  55. RAMIPRIL [Concomitant]
     Active Substance: RAMIPRIL
     Indication: Product used for unknown indication
     Dosage: 2.5 MILLIGRAM QD, START 23-MAY-2017
     Route: 048
  56. RAMIPRIL [Concomitant]
     Active Substance: RAMIPRIL
     Dosage: 1.25 MILLIGRAM, H
     Route: 048
  57. RAMIPRIL [Concomitant]
     Active Substance: RAMIPRIL
     Dosage: 1.25 MILLIGRAM,1.25 MG, EVERY 1 DAY (START 23-MAY-2017)
     Route: 048
     Dates: start: 20170523
  58. RAMIPRIL [Concomitant]
     Active Substance: RAMIPRIL
     Dosage: 2.5 MILLIGRAM, (1.25 MG, 2X/DAY)
     Route: 048
     Dates: start: 20170523
  59. RAMIPRIL [Concomitant]
     Active Substance: RAMIPRIL
     Dosage: 1.25 MILLIGRAM, (1.25 MG, EVERY 0.5 DAY)
     Route: 048
     Dates: start: 20170523
  60. RAMIPRIL [Concomitant]
     Active Substance: RAMIPRIL
     Dosage: 2.5 MILLIGRAM, QD, (CUM DOSE TO FIRST REACTION: 1347.3959 MG)
     Route: 048
     Dates: start: 20170523
  61. RAMIPRIL [Concomitant]
     Active Substance: RAMIPRIL
     Dosage: 1.25 MILLIGRAM
     Route: 048
     Dates: start: 20170523
  62. ASPIRIN [Concomitant]
     Active Substance: ASPIRIN
     Indication: Product used for unknown indication
     Dosage: 75 MILLIGRAM, QD (START 23-MAY-2017)75 MG, 1X/DAY
     Route: 048
     Dates: start: 20170523, end: 20170701
  63. ASPIRIN [Concomitant]
     Active Substance: ASPIRIN
     Dosage: UNK
  64. LANSOPRAZOLE [Concomitant]
     Active Substance: LANSOPRAZOLE
     Indication: Product used for unknown indication
     Dosage: 30 MILLIGRAM, QD, (START 12-MAR-2017)(CUM DOSE : 14010.0 MG)
     Route: 048
  65. LANSOPRAZOLE [Concomitant]
     Active Substance: LANSOPRAZOLE
     Dosage: 30 MILLIGRAM, QD,  (30 MG, 1X/DAY)
     Route: 048
     Dates: start: 20170312
  66. LANSOPRAZOLE [Concomitant]
     Active Substance: LANSOPRAZOLE
     Dosage: 30 MILLIGRAM, QD
     Route: 048
     Dates: start: 20170312
  67. LANSOPRAZOLE [Concomitant]
     Active Substance: LANSOPRAZOLE
     Dosage: 30 MILLIGRAM, QD, (CUM DOSE: 14010.0 MG)
     Route: 048
     Dates: start: 20170312
  68. CETIRIZINE [Concomitant]
     Active Substance: CETIRIZINE HYDROCHLORIDE
     Indication: Prophylaxis
     Dosage: 10 MILLIGRAM, (1 TABLET AT NIGHT FOR 3 DAYS)
     Route: 048
     Dates: start: 20151203
  69. CETIRIZINE [Concomitant]
     Active Substance: CETIRIZINE HYDROCHLORIDE
     Indication: Antiviral prophylaxis
     Dosage: 10 MILLIGRAM, (1 TABLET AT NIGHT FOR 3 DAYS)
     Dates: start: 20151203
  70. CHLORHEXIDINE GLUCONATE [Concomitant]
     Active Substance: CHLORHEXIDINE GLUCONATE
     Indication: Prophylaxis
     Dosage: 4 UNK, QD (MOUTHWASH) START 05-NOV-2015
     Route: 048
  71. CHLORHEXIDINE GLUCONATE [Concomitant]
     Active Substance: CHLORHEXIDINE GLUCONATE
     Dosage: 4 UNK, QD (MOUTHWASH) START 05-NOV-2015
     Route: 048
  72. CHLORHEXIDINE GLUCONATE [Concomitant]
     Active Substance: CHLORHEXIDINE GLUCONATE
     Dosage: UNK, (EVERY 0.25 DAY (MOUTHWASH))
     Route: 048
     Dates: start: 20151105
  73. CHLORHEXIDINE GLUCONATE [Concomitant]
     Active Substance: CHLORHEXIDINE GLUCONATE
     Dosage: UNK, (4 UNK, 1X/DAY (MOUTHWASH))
     Route: 048
     Dates: start: 20151105
  74. CHLORHEXIDINE GLUCONATE [Concomitant]
     Active Substance: CHLORHEXIDINE GLUCONATE
     Dosage: UNK, (4 EVERY 1 DAY (MOUTHWASH))
     Route: 048
     Dates: start: 20151105
  75. CHLORHEXIDINE GLUCONATE [Concomitant]
     Active Substance: CHLORHEXIDINE GLUCONATE
     Dosage: UNK, (4(NO UNIT REPORTED) EVERY 1 DAY (MOUTHWASH))
     Route: 048
     Dates: start: 20151105
  76. CHLORHEXIDINE GLUCONATE [Concomitant]
     Active Substance: CHLORHEXIDINE GLUCONATE
     Dosage: 4 DOSAGE FORM, QD,UNK,(4 EVERY 1 DAY (MOUTHWASH)
     Route: 048
     Dates: start: 20151105
  77. RANITIDINE [Concomitant]
     Active Substance: RANITIDINE
     Indication: Prophylaxis
     Dosage: 300 MILLIGRAM150 MILLIGRAM (1 TABLET TWICE A DAY FOR 3 DAYS)
     Route: 048
     Dates: start: 20151203
  78. RANITIDINE [Concomitant]
     Active Substance: RANITIDINE
     Dosage: 150 MILLIGRAM(1 TABLET TWICE A DAY FOR 3 DAYS)
     Route: 048
     Dates: start: 20151203
  79. EZETIMIBE [Concomitant]
     Active Substance: EZETIMIBE
     Indication: Product used for unknown indication
     Dosage: UNK (DOSE FORM:245) START: 2019
     Route: 048
     Dates: start: 2019
  80. ROSUVASTATIN [Concomitant]
     Active Substance: ROSUVASTATIN
     Indication: Product used for unknown indication
     Dosage: 5 MILLIGRAM, (START JUN-2018)
     Route: 048
     Dates: start: 201806, end: 201911
  81. ROSUVASTATIN [Concomitant]
     Active Substance: ROSUVASTATIN
     Dosage: UNK
  82. ROSUVASTATIN [Concomitant]
     Active Substance: ROSUVASTATIN
     Dosage: 5 MILLIGRAM
     Route: 048
     Dates: start: 201806, end: 201911
  83. ASPIRIN [Concomitant]
     Active Substance: ASPIRIN
     Indication: Product used for unknown indication
     Dosage: 75 MILLIGRAM, QD
     Route: 048
     Dates: start: 20170523, end: 20170701
  84. ASPIRIN [Concomitant]
     Active Substance: ASPIRIN
     Dosage: 75 MILLIGRAM, QD, (CUM DOSE : 40421)
     Route: 048
     Dates: start: 20170523, end: 20170701
  85. ASPIRIN [Concomitant]
     Active Substance: ASPIRIN
     Dosage: 75 MILLIGRAM,  (75 MG, 1X/DAY)
     Route: 048
     Dates: start: 20170523, end: 20170701
  86. ASPIRIN [Concomitant]
     Active Substance: ASPIRIN
     Dosage: 75 MILLIGRAM, QD
     Dates: start: 20170701
  87. ROSUVASTATIN CALCIUM [Concomitant]
     Active Substance: ROSUVASTATIN CALCIUM
     Indication: Product used for unknown indication
     Dosage: 5 MILLIGRAM
     Route: 048
     Dates: start: 201806, end: 201911
  88. TRAMADOL [Concomitant]
     Active Substance: TRAMADOL
     Indication: Prophylaxis
     Dosage: 50 MILLIGRAM
     Route: 048
     Dates: start: 20151105

REACTIONS (22)
  - Anaphylactic reaction [Recovered/Resolved]
  - Cystitis noninfective [Recovered/Resolved]
  - Defaecation urgency [Recovered/Resolved]
  - Tendonitis [Not Recovered/Not Resolved]
  - Palmar erythema [Recovered/Resolved]
  - Mucosal inflammation [Recovered/Resolved]
  - Tremor [Recovered/Resolved]
  - Erythema [Recovered/Resolved]
  - Urosepsis [Recovered/Resolved]
  - Bacterial test positive [Recovered/Resolved]
  - Neuropathy peripheral [Recovered/Resolved]
  - Urinary tract infection [Recovered/Resolved]
  - Hypersensitivity [Recovered/Resolved]
  - Diarrhoea [Recovered/Resolved]
  - Malaise [Recovered/Resolved]
  - Rash [Recovered/Resolved]
  - Hypertension [Recovered/Resolved]
  - Fatigue [Recovered/Resolved]
  - Dyspnoea [Recovered/Resolved]
  - Escherichia test positive [Not Recovered/Not Resolved]
  - Dysuria [Recovered/Resolved]
  - Chest discomfort [Recovered/Resolved]

NARRATIVE: CASE EVENT DATE: 20151201
